FAERS Safety Report 8825943 (Version 1)
Quarter: 2012Q4

REPORT INFORMATION
  Report Type: 
  Country: US (occurrence: US)
  Receive Date: 20121005
  Receipt Date: 20121005
  Transmission Date: 20130627
  Serious: Yes (Death)
  Sender: FDA-Public Use
  Company Number: US-ROCHE-1130900

PATIENT
  Sex: Male

DRUGS (10)
  1. RITUXAN [Suspect]
     Indication: LYMPHOMA
     Route: 065
     Dates: start: 19980129
  2. RITUXAN [Suspect]
     Route: 065
     Dates: start: 19981029
  3. RITUXAN [Suspect]
     Route: 065
     Dates: start: 19981105
  4. RITUXAN [Suspect]
     Route: 065
     Dates: start: 19981112
  5. RITUXAN [Suspect]
     Route: 065
     Dates: start: 19981120
  6. RITUXAN [Suspect]
     Route: 065
     Dates: start: 19981124
  7. RITUXAN [Suspect]
     Route: 065
     Dates: start: 19981204
  8. RITUXAN [Suspect]
     Route: 065
     Dates: start: 19981211
  9. BENADRYL [Concomitant]
  10. DEXAMETHASONE [Concomitant]

REACTIONS (2)
  - Death [Fatal]
  - Nausea [Unknown]
